FAERS Safety Report 24734443 (Version 1)
Quarter: 2024Q4

REPORT INFORMATION
  Report Type: Spontaneous
  Country: KR (occurrence: KR)
  Receive Date: 20241214
  Receipt Date: 20241214
  Transmission Date: 20250114
  Serious: Yes (Hospitalization, Other)
  Sender: ALKEM
  Company Number: None

PATIENT
  Age: 41 Year
  Sex: Male

DRUGS (9)
  1. MYCOPHENOLATE MOFETIL [Suspect]
     Active Substance: MYCOPHENOLATE MOFETIL
     Indication: Immunosuppressant drug therapy
     Dosage: UNK
     Route: 065
  2. TACROLIMUS [Suspect]
     Active Substance: TACROLIMUS
     Indication: Immunosuppressant drug therapy
     Dosage: 2.5 MILLIGRAM, BID
     Route: 065
  3. TACROLIMUS [Suspect]
     Active Substance: TACROLIMUS
     Dosage: 1.5 MILLIGRAM, BID
     Route: 065
  4. THYMOCYTE IMMUNE GLOBULIN NOS [Suspect]
     Active Substance: THYMOCYTE IMMUNE GLOBULIN NOS
     Indication: Immunosuppressant drug therapy
     Dosage: 1.25 MILLIGRAM/KILOGRAM
     Route: 065
  5. THYMOCYTE IMMUNE GLOBULIN NOS [Suspect]
     Active Substance: THYMOCYTE IMMUNE GLOBULIN NOS
     Dosage: 1 MILLIGRAM/KILOGRAM
     Route: 065
  6. RITUXIMAB [Suspect]
     Active Substance: RITUXIMAB
     Indication: Immunosuppressant drug therapy
     Dosage: 200 MILLIGRAM, EVERY 1 MONTH (SINGLE DOSE)
     Route: 065
  7. DEXTROSE [Concomitant]
     Active Substance: DEXTROSE MONOHYDRATE
     Indication: Product used for unknown indication
     Dosage: 5 PERCENT IN WATER (INFUSION)
     Route: 042
  8. Normal saline (Sodium chloride) [Concomitant]
     Indication: Product used for unknown indication
     Dosage: 250 MILLILITER (50 ML PER IV) FOR 4 HOURS (POST OPERATIVE DAYS)
     Route: 042
  9. Normal saline (Sodium chloride) [Concomitant]
     Dosage: 250 MILLILITER (50 ML PER IV) FOR 6 HOURS INTRAOPERATIVELY (ON THE DAY OF OPERATION)
     Route: 042

REACTIONS (2)
  - Cytomegalovirus infection [Recovering/Resolving]
  - Polyomavirus viraemia [Recovering/Resolving]
